FAERS Safety Report 9491309 (Version 1)
Quarter: 2013Q3

REPORT INFORMATION
  Report Type: Spontaneous
  Country: US (occurrence: US)
  Receive Date: 20130830
  Receipt Date: 20130830
  Transmission Date: 20140515
  Serious: Yes (Other)
  Sender: FDA-Public Use
  Company Number: US-PFIZER INC-2013250785

PATIENT
  Age: 25 Year
  Sex: Female
  Weight: 75.7 kg

DRUGS (2)
  1. LYRICA [Suspect]
     Indication: NEURALGIA
     Dosage: UNK
     Dates: start: 2006, end: 2013
  2. LYRICA [Suspect]
     Indication: NERVE COMPRESSION

REACTIONS (3)
  - Road traffic accident [Unknown]
  - Back injury [Unknown]
  - Neuralgia [Unknown]
